FAERS Safety Report 17071824 (Version 3)
Quarter: 2019Q4

REPORT INFORMATION
  Report Type: Other
  Country: AU (occurrence: AU)
  Receive Date: 20191125
  Receipt Date: 20191204
  Transmission Date: 20200122
  Serious: Yes (Hospitalization, Other)
  Sender: FDA-Public Use
  Company Number: AU-TOLMAR, INC.-19AU000024

PATIENT
  Age: 75 Year
  Sex: Male

DRUGS (1)
  1. ELIGARD [Suspect]
     Active Substance: LEUPROLIDE ACETATE
     Indication: PROSTATE CANCER
     Dosage: 22.5 MG, EVERY 3 MONTHS
     Route: 065

REACTIONS (5)
  - Urinary retention [Unknown]
  - Femur fracture [Recovering/Resolving]
  - Fall [Recovering/Resolving]
  - Bone cancer [Unknown]
  - Viral infection [Unknown]

NARRATIVE: CASE EVENT DATE: 201908
